FAERS Safety Report 25230080 (Version 1)
Quarter: 2025Q2

REPORT INFORMATION
  Report Type: Spontaneous
  Country: US (occurrence: US)
  Receive Date: 20250423
  Receipt Date: 20250423
  Transmission Date: 20250717
  Serious: No
  Sender: MYLAN
  Company Number: US-MYLANLABS-2025M1032870

PATIENT
  Age: 72 Year
  Sex: Female

DRUGS (60)
  1. METOPROLOL [Suspect]
     Active Substance: METOPROLOL
     Indication: Product used for unknown indication
  2. METOPROLOL [Suspect]
     Active Substance: METOPROLOL
     Route: 065
  3. METOPROLOL [Suspect]
     Active Substance: METOPROLOL
     Route: 065
  4. METOPROLOL [Suspect]
     Active Substance: METOPROLOL
  5. AYVAKIT [Suspect]
     Active Substance: AVAPRITINIB
     Indication: Indolent systemic mastocytosis
     Dosage: 25 MILLIGRAM, QD (1 IN 1 DAY)
     Dates: start: 20241230
  6. AYVAKIT [Suspect]
     Active Substance: AVAPRITINIB
     Dosage: 25 MILLIGRAM, QD (1 IN 1 DAY)
     Route: 048
     Dates: start: 20241230
  7. AYVAKIT [Suspect]
     Active Substance: AVAPRITINIB
     Dosage: 25 MILLIGRAM, QD (1 IN 1 DAY)
     Route: 048
     Dates: start: 20241230
  8. AYVAKIT [Suspect]
     Active Substance: AVAPRITINIB
     Dosage: 25 MILLIGRAM, QD (1 IN 1 DAY)
     Dates: start: 20241230
  9. ADVIL [Concomitant]
     Active Substance: IBUPROFEN
     Indication: Product used for unknown indication
  10. ADVIL [Concomitant]
     Active Substance: IBUPROFEN
     Route: 065
  11. ADVIL [Concomitant]
     Active Substance: IBUPROFEN
     Route: 065
  12. ADVIL [Concomitant]
     Active Substance: IBUPROFEN
  13. ALBUTEROL SULFATE [Concomitant]
     Active Substance: ALBUTEROL SULFATE
     Indication: Product used for unknown indication
  14. ALBUTEROL SULFATE [Concomitant]
     Active Substance: ALBUTEROL SULFATE
     Route: 065
  15. ALBUTEROL SULFATE [Concomitant]
     Active Substance: ALBUTEROL SULFATE
     Route: 065
  16. ALBUTEROL SULFATE [Concomitant]
     Active Substance: ALBUTEROL SULFATE
  17. AMOXICILLIN [Concomitant]
     Active Substance: AMOXICILLIN
     Indication: Product used for unknown indication
  18. AMOXICILLIN [Concomitant]
     Active Substance: AMOXICILLIN
     Route: 065
  19. AMOXICILLIN [Concomitant]
     Active Substance: AMOXICILLIN
     Route: 065
  20. AMOXICILLIN [Concomitant]
     Active Substance: AMOXICILLIN
  21. ASTAXANTHIN [Concomitant]
     Active Substance: ASTAXANTHIN
     Indication: Product used for unknown indication
  22. ASTAXANTHIN [Concomitant]
     Active Substance: ASTAXANTHIN
     Route: 065
  23. ASTAXANTHIN [Concomitant]
     Active Substance: ASTAXANTHIN
     Route: 065
  24. ASTAXANTHIN [Concomitant]
     Active Substance: ASTAXANTHIN
  25. CETIRIZINE [Concomitant]
     Active Substance: CETIRIZINE HYDROCHLORIDE
     Indication: Product used for unknown indication
  26. CETIRIZINE [Concomitant]
     Active Substance: CETIRIZINE HYDROCHLORIDE
     Route: 065
  27. CETIRIZINE [Concomitant]
     Active Substance: CETIRIZINE HYDROCHLORIDE
     Route: 065
  28. CETIRIZINE [Concomitant]
     Active Substance: CETIRIZINE HYDROCHLORIDE
  29. VITAMINS [Concomitant]
     Active Substance: VITAMINS
     Indication: Product used for unknown indication
  30. VITAMINS [Concomitant]
     Active Substance: VITAMINS
     Route: 065
  31. VITAMINS [Concomitant]
     Active Substance: VITAMINS
     Route: 065
  32. VITAMINS [Concomitant]
     Active Substance: VITAMINS
  33. ELIQUIS [Concomitant]
     Active Substance: APIXABAN
     Indication: Product used for unknown indication
  34. ELIQUIS [Concomitant]
     Active Substance: APIXABAN
     Route: 065
  35. ELIQUIS [Concomitant]
     Active Substance: APIXABAN
     Route: 065
  36. ELIQUIS [Concomitant]
     Active Substance: APIXABAN
  37. EZETIMIBE AND SIMVASTATIN [Concomitant]
     Active Substance: EZETIMIBE\SIMVASTATIN
     Indication: Product used for unknown indication
  38. EZETIMIBE AND SIMVASTATIN [Concomitant]
     Active Substance: EZETIMIBE\SIMVASTATIN
     Route: 065
  39. EZETIMIBE AND SIMVASTATIN [Concomitant]
     Active Substance: EZETIMIBE\SIMVASTATIN
     Route: 065
  40. EZETIMIBE AND SIMVASTATIN [Concomitant]
     Active Substance: EZETIMIBE\SIMVASTATIN
  41. FAMOTIDINE [Concomitant]
     Active Substance: FAMOTIDINE
     Indication: Product used for unknown indication
  42. FAMOTIDINE [Concomitant]
     Active Substance: FAMOTIDINE
     Route: 065
  43. FAMOTIDINE [Concomitant]
     Active Substance: FAMOTIDINE
     Route: 065
  44. FAMOTIDINE [Concomitant]
     Active Substance: FAMOTIDINE
  45. CALCIUM [Concomitant]
     Active Substance: CALCIUM
     Indication: Product used for unknown indication
  46. CALCIUM [Concomitant]
     Active Substance: CALCIUM
     Route: 065
  47. CALCIUM [Concomitant]
     Active Substance: CALCIUM
     Route: 065
  48. CALCIUM [Concomitant]
     Active Substance: CALCIUM
  49. Heliocare [Concomitant]
     Indication: Product used for unknown indication
  50. Heliocare [Concomitant]
     Route: 065
  51. Heliocare [Concomitant]
     Route: 065
  52. Heliocare [Concomitant]
  53. Nutrafol [Concomitant]
     Indication: Product used for unknown indication
  54. Nutrafol [Concomitant]
     Route: 065
  55. Nutrafol [Concomitant]
     Route: 065
  56. Nutrafol [Concomitant]
  57. OMEGA-3 ACIDS [Concomitant]
     Active Substance: OMEGA-3 FATTY ACIDS
     Indication: Product used for unknown indication
  58. OMEGA-3 ACIDS [Concomitant]
     Active Substance: OMEGA-3 FATTY ACIDS
     Route: 065
  59. OMEGA-3 ACIDS [Concomitant]
     Active Substance: OMEGA-3 FATTY ACIDS
     Route: 065
  60. OMEGA-3 ACIDS [Concomitant]
     Active Substance: OMEGA-3 FATTY ACIDS

REACTIONS (1)
  - Fatigue [Not Recovered/Not Resolved]
